FAERS Safety Report 25043970 (Version 1)
Quarter: 2025Q1

REPORT INFORMATION
  Report Type: Report from Study
  Country: IT (occurrence: IT)
  Receive Date: 20250306
  Receipt Date: 20250306
  Transmission Date: 20250409
  Serious: Yes (Other)
  Sender: AUROBINDO
  Company Number: IT-GKKIN-20171124-PI290319-3

PATIENT

DRUGS (1)
  1. MELPHALAN [Suspect]
     Active Substance: MELPHALAN
     Indication: Metastatic malignant melanoma
     Route: 065

REACTIONS (2)
  - Skin reaction [Recovered/Resolved]
  - Dyspnoea [Recovered/Resolved]
